FAERS Safety Report 21482509 (Version 1)
Quarter: 2022Q4

REPORT INFORMATION
  Report Type: Spontaneous
  Country: US (occurrence: US)
  Receive Date: 20221020
  Receipt Date: 20221020
  Transmission Date: 20230112
  Serious: No
  Sender: FDA-Public Use
  Company Number: US-TAKEDA-2022TUS075104

PATIENT
  Sex: Female
  Weight: 63 kg

DRUGS (1)
  1. VYVANSE [Suspect]
     Active Substance: LISDEXAMFETAMINE DIMESYLATE
     Indication: Disturbance in attention
     Dosage: 40 MILLIGRAM
     Route: 065

REACTIONS (2)
  - Product administration error [Unknown]
  - No adverse event [Unknown]
